FAERS Safety Report 6095552-2 (Version None)
Quarter: 2009Q1

REPORT INFORMATION
  Report Type: 
  Country: None (occurrence: None)
  Receive Date: 20090227
  Receipt Date: 20080506
  Transmission Date: 20090719
  Serious: No
  Sender: FDA-Public Use
  Company Number: A0724548A

PATIENT
  Age: 50 Year
  Sex: Female

DRUGS (3)
  1. LAMICTAL [Suspect]
     Indication: BIPOLAR DISORDER
     Dosage: 150MG PER DAY
     Route: 048
     Dates: start: 20080101
  2. WELLBUTRIN SR [Concomitant]
     Dosage: 150MG IN THE MORNING
  3. AZITHROMYCIN [Concomitant]
     Dates: start: 20080421

REACTIONS (1)
  - RASH MACULO-PAPULAR [None]
